FAERS Safety Report 6239689-3 (Version None)
Quarter: 2009Q2

REPORT INFORMATION
  Report Type: 
  Country: None (occurrence: None)
  Receive Date: 20090619
  Receipt Date: 20090610
  Transmission Date: 20091009
  Serious: Yes (Hospitalization)
  Sender: FDA-Public Use
  Company Number: GXKR2009AU06754

PATIENT
  Age: 31 Year
  Sex: Male

DRUGS (2)
  1. FLUPHENAZINE [Suspect]
     Dosage: 50 MG ON ALTERNATE DAYS (DAYS 1, 3 AND 5; TOTAL OF 150 MG), INTRAMUSCULAR
     Route: 030
  2. DECA-DURABOLIN [Suspect]

REACTIONS (3)
  - EXTRAPYRAMIDAL DISORDER [None]
  - LETHARGY [None]
  - MEDICATION ERROR [None]
